FAERS Safety Report 8127276-1 (Version None)
Quarter: 2012Q1

REPORT INFORMATION
  Report Type: 
  Country: None (occurrence: None)
  Receive Date: 20120210
  Receipt Date: 20120201
  Transmission Date: 20120608
  Serious: Yes (Hospitalization)
  Sender: FDA-Public Use
  Company Number: IL-ABBOTT-12P-082-0900674-00

PATIENT
  Sex: Female

DRUGS (1)
  1. HUMIRA [Suspect]
     Indication: CROHN'S DISEASE
     Route: 058
     Dates: start: 20120119, end: 20120119

REACTIONS (4)
  - CROHN'S DISEASE [None]
  - ASCITES [None]
  - ABDOMINAL ABSCESS [None]
  - ABDOMINAL PAIN UPPER [None]
